FAERS Safety Report 16653385 (Version 2)
Quarter: 2019Q3

REPORT INFORMATION
  Report Type: Report from Study
  Country: US (occurrence: US)
  Receive Date: 20190731
  Receipt Date: 20190905
  Transmission Date: 20191004
  Serious: Yes (Other)
  Sender: FDA-Public Use
  Company Number: US-JNJFOC-20181120135

PATIENT
  Age: 60 Year
  Sex: Female

DRUGS (4)
  1. IMBRUVICA [Suspect]
     Active Substance: IBRUTINIB
     Route: 048
     Dates: start: 20190701
  2. IMBRUVICA [Suspect]
     Active Substance: IBRUTINIB
     Route: 048
     Dates: start: 2019
  3. IMBRUVICA [Suspect]
     Active Substance: IBRUTINIB
     Indication: CHRONIC LYMPHOCYTIC LEUKAEMIA
     Route: 048
     Dates: start: 20180530, end: 201906
  4. IMBRUVICA [Suspect]
     Active Substance: IBRUTINIB
     Route: 048
     Dates: start: 20180531

REACTIONS (10)
  - Nasopharyngitis [Unknown]
  - Diarrhoea [Unknown]
  - Contusion [Unknown]
  - Vomiting [Unknown]
  - Seizure [Unknown]
  - Arthralgia [Unknown]
  - Increased tendency to bruise [Not Recovered/Not Resolved]
  - Angina pectoris [Not Recovered/Not Resolved]
  - Muscle spasms [Unknown]
  - Gastroenteritis viral [Not Recovered/Not Resolved]

NARRATIVE: CASE EVENT DATE: 2018
